FAERS Safety Report 7774189-0 (Version None)
Quarter: 2011Q3

REPORT INFORMATION
  Report Type: 
  Country: None (occurrence: None)
  Receive Date: 20110923
  Receipt Date: 20110922
  Transmission Date: 20111222
  Serious: Yes (Other)
  Sender: FDA-Public Use
  Company Number: US-PFIZER INC-2011154050

PATIENT
  Sex: Female
  Weight: 86 kg

DRUGS (8)
  1. CHANTIX [Suspect]
     Dosage: 1 MG, 2X/DAY
     Route: 048
     Dates: start: 20110601, end: 20110625
  2. CYMBALTA [Concomitant]
     Indication: ANXIETY
  3. ABILIFY [Concomitant]
     Indication: DEPRESSION
     Dosage: 10 MG, DAILY
     Route: 048
  4. ABILIFY [Concomitant]
     Indication: ANXIETY
  5. CYMBALTA [Concomitant]
     Indication: DEPRESSION
     Dosage: 120 MG, DAILY
     Route: 048
  6. CHANTIX [Suspect]
     Indication: SMOKING CESSATION THERAPY
     Dosage: 0.5 MG, DAILY
     Route: 048
     Dates: start: 20110614, end: 20110601
  7. LEVOTHYROXINE [Concomitant]
     Indication: HYPOTHYROIDISM
     Dosage: 0.125 MG, DAILY
  8. ADDERALL 5 [Concomitant]
     Indication: ATTENTION DEFICIT/HYPERACTIVITY DISORDER
     Dosage: 40 MG, DAILY

REACTIONS (13)
  - INSOMNIA [None]
  - MOUTH INJURY [None]
  - NIGHTMARE [None]
  - OROPHARYNGEAL PAIN [None]
  - OEDEMA MOUTH [None]
  - STOMATITIS [None]
  - PHARYNGEAL DISORDER [None]
  - SWELLING FACE [None]
  - DRY MOUTH [None]
  - DYSPHAGIA [None]
  - DYSGEUSIA [None]
  - TONGUE DISORDER [None]
  - SWOLLEN TONGUE [None]
